FAERS Safety Report 8276843-3 (Version None)
Quarter: 2012Q2

REPORT INFORMATION
  Report Type: 
  Country: None (occurrence: None)
  Receive Date: 20120412
  Receipt Date: 20120404
  Transmission Date: 20120825
  Serious: Yes (Other)
  Sender: FDA-Public Use
  Company Number: US-BAYER-2012-033526

PATIENT
  Age: 68 Year
  Sex: Female
  Weight: 77 kg

DRUGS (6)
  1. DILTIAZEM [Concomitant]
  2. VITAMIN D [Concomitant]
     Dosage: 50000 IU (1 TABLET) UNK FREQUENCY
  3. CITRACAL MAXIMUM [Suspect]
     Dosage: 2 DF, QD WITH FOOD
     Route: 048
     Dates: start: 20120201, end: 20120301
  4. TRIAMTEREN HCT [Concomitant]
  5. CRESTOR [Concomitant]
  6. CALCIUM CARBONATE [Suspect]
     Dosage: 1 DF, QD WITH FOOD
     Route: 048
     Dates: start: 20120301, end: 20120301

REACTIONS (4)
  - LIP SWELLING [None]
  - ABDOMINAL DISCOMFORT [None]
  - URTICARIA [None]
  - NASAL CONGESTION [None]
